FAERS Safety Report 5595839-3 (Version None)
Quarter: 2008Q1

REPORT INFORMATION
  Report Type: 
  Country: None (occurrence: None)
  Receive Date: 20080118
  Receipt Date: 20080104
  Transmission Date: 20080703
  Serious: Yes (Hospitalization)
  Sender: FDA-Public Use
  Company Number: KR-ELI_LILLY_AND_COMPANY-KR200708002163

PATIENT
  Sex: Male
  Weight: 41.5 kg

DRUGS (28)
  1. PEMETREXED [Suspect]
     Indication: NON-SMALL CELL LUNG CANCER
     Dosage: 500 MG/M2, DAY 1 EVERY 3 WEEKS
     Route: 042
     Dates: start: 20070803, end: 20070803
  2. FOLIC ACID [Concomitant]
     Indication: PROPHYLAXIS
     Dosage: 1 MG, UNK
     Route: 048
     Dates: start: 20070726
  3. VITAMIN B-12 [Concomitant]
     Indication: PROPHYLAXIS
     Dosage: 1 MG, UNK
     Route: 030
     Dates: start: 20070726, end: 20070726
  4. DEXAMETHASONE TAB [Concomitant]
     Indication: PROPHYLAXIS
     Dosage: 4 MG, UNK
     Route: 048
     Dates: start: 20070801, end: 20070804
  5. ITOPRIDE [Concomitant]
     Indication: FLATULENCE
     Dosage: 50 MG, 3/D
     Route: 065
     Dates: start: 20070804, end: 20071009
  6. OXYCODONE [Concomitant]
     Dosage: 5 MG, DAILY (1/D)
     Route: 065
     Dates: start: 20070802, end: 20070802
  7. OXYCODONE [Concomitant]
     Dosage: 10 MG, 2/D
     Route: 065
     Dates: start: 20070803, end: 20070809
  8. OXYCODONE [Concomitant]
     Dosage: 5 MG, DAILY (1/D)
     Dates: start: 20070916, end: 20071009
  9. DURAGESIC-100 [Concomitant]
     Dosage: 12 UG PER HOUR 1 PATCH/3 DAYS
     Route: 065
     Dates: start: 20070804
  10. ALMAGATE [Concomitant]
     Indication: ANTACID THERAPY
     Dosage: 1.5 G, 4/D
     Route: 065
     Dates: start: 20070803, end: 20070809
  11. AMBROXOL [Concomitant]
     Indication: COUGH
     Dosage: 30 MG, 3/D
     Route: 065
     Dates: start: 20070726, end: 20070804
  12. AMBROXOL [Concomitant]
     Dosage: 15 MG, 3/D
     Route: 042
     Dates: start: 20070810, end: 20070812
  13. AMBROXOL [Concomitant]
     Dosage: 30 MG, 3/D
     Route: 048
     Dates: start: 20071018, end: 20071019
  14. LACTOBACILLUS ACIDOPHILUS [Concomitant]
     Indication: ANTIDIARRHOEAL SUPPORTIVE CARE
     Dosage: 300 NG, 3/D
     Route: 065
     Dates: start: 20070804
  15. RANITIDINE [Concomitant]
     Indication: ANTACID THERAPY
     Dosage: 150 MG, 3/D
     Route: 065
     Dates: start: 20070801, end: 20070924
  16. FENTANYL [Concomitant]
     Indication: PAIN
     Dosage: 12 MCG/HR, UNK
     Dates: start: 20070804, end: 20070822
  17. FENTANYL [Concomitant]
     Dosage: 12 MCG/HR, DAILY (1/D)
     Dates: start: 20070828, end: 20071007
  18. FENTANYL [Concomitant]
     Dosage: 25 MCG/HR, DAILY (1/D)
     Dates: start: 20070822, end: 20071009
  19. FENTANYL [Concomitant]
     Dosage: 25 MCG/HR, DAILY (1/D)
     Dates: start: 20071012, end: 20071019
  20. FENTANYL [Concomitant]
     Dosage: 50 MCG/HR, DAILY (1/D)
     Dates: start: 20071010, end: 20071019
  21. BROMHEXINE [Concomitant]
     Indication: ANTITUSSIVE THERAPY
     Dosage: 4 MG, 3/D
     Route: 042
     Dates: start: 20070815, end: 20070908
  22. METOCLOPRAMIDE [Concomitant]
     Dosage: 10 MG, 3/D
     Route: 042
     Dates: start: 20070810, end: 20070812
  23. METOCLOPRAMIDE [Concomitant]
     Dosage: 10 MG, DAILY (1/D)
     Route: 042
     Dates: start: 20070822, end: 20071017
  24. PANTOPRAZOLE SODIUM [Concomitant]
     Indication: PEPTIC ULCER
     Dosage: 40 MG, DAILY (1/D)
     Dates: start: 20070818, end: 20070902
  25. TRAMADOL HCL [Concomitant]
     Indication: PAIN
     Dosage: 50 MG, DAILY (1/D)
     Dates: start: 20070821, end: 20071009
  26. ACETAMINOPHEN [Concomitant]
     Indication: ANALGESIC THERAPY
     Dosage: 650 MG, DAILY (1/D)
     Dates: start: 20070811, end: 20070811
  27. ZOLPIDEM [Concomitant]
     Indication: INSOMNIA
     Dosage: 5 MG, DAILY (1/D)
     Dates: start: 20070813, end: 20070917
  28. LACTULOSE [Concomitant]
     Indication: ANTIDIARRHOEAL SUPPORTIVE CARE
     Dosage: 300 MG, 3/D
     Dates: start: 20070804, end: 20070809

REACTIONS (3)
  - ANOREXIA [None]
  - LOSS OF CONSCIOUSNESS [None]
  - PNEUMONIA ASPIRATION [None]
